FAERS Safety Report 25179364 (Version 5)
Quarter: 2025Q2

REPORT INFORMATION
  Report Type: Spontaneous
  Country: JP (occurrence: JP)
  Receive Date: 20250409
  Receipt Date: 20250530
  Transmission Date: 20250717
  Serious: Yes (Life-Threatening, Hospitalization, Other)
  Sender: MERCK SHARP & DOHME LLC
  Company Number: JP-009507513-2271158

PATIENT
  Age: 85 Year
  Sex: Male
  Weight: 49.5 kg

DRUGS (7)
  1. SUGAMMADEX SODIUM [Suspect]
     Active Substance: SUGAMMADEX SODIUM
     Indication: Neuromuscular blockade reversal
     Route: 042
     Dates: start: 20250327, end: 20250327
  2. REMIFENTANIL HYDROCHLORIDE [Suspect]
     Active Substance: REMIFENTANIL HYDROCHLORIDE
     Indication: Analgesic therapy
     Route: 042
     Dates: start: 20250327, end: 20250327
  3. SEVOFLURANE [Concomitant]
     Active Substance: SEVOFLURANE
     Indication: Induction of anaesthesia
     Route: 055
     Dates: start: 20250327, end: 20250327
  4. PROPOFOL(PROPOFOL) [Concomitant]
     Indication: Induction of anaesthesia
     Route: 055
     Dates: start: 20250327, end: 20250327
  5. NEO-SYNESIN(PHENYLEPHRINE HYDROCHLORIDE) [Concomitant]
     Indication: Blood antidiuretic hormone
     Route: 042
     Dates: start: 20250327, end: 20250327
  6. ROCURONIUM BROMIDE(ROCURONIUM BROMIDE) [Concomitant]
     Indication: Hypotonia
     Route: 042
     Dates: start: 20250327, end: 20250327
  7. CEFAZOLIN SODIUM(CEFAZOLIN SODIUM) [Concomitant]
     Indication: Infection prophylaxis
     Route: 042
     Dates: start: 20250327, end: 20250327

REACTIONS (3)
  - Bradycardia [Recovered/Resolved]
  - Ventricular extrasystoles [Unknown]
  - Electrocardiogram ST segment abnormal [Recovering/Resolving]

NARRATIVE: CASE EVENT DATE: 20250327
